FAERS Safety Report 21791619 (Version 1)
Quarter: 2022Q4

REPORT INFORMATION
  Report Type: Spontaneous
  Country: US (occurrence: US)
  Receive Date: 20221228
  Receipt Date: 20221228
  Transmission Date: 20230112
  Serious: No
  Sender: FDA-Public Use
  Company Number: US-GLAXOSMITHKLINE-US2022191950

PATIENT
  Age: 66 Year
  Sex: Female

DRUGS (2)
  1. ZEJULA [Suspect]
     Active Substance: NIRAPARIB
     Indication: Ovarian cancer
     Dosage: 200 MG, QD
     Route: 048
     Dates: start: 20221207
  2. ZEJULA [Suspect]
     Active Substance: NIRAPARIB
     Dosage: 100 MG, QD (1 CAPSULE)

REACTIONS (9)
  - Illness [Unknown]
  - Abdominal pain upper [Unknown]
  - Fatigue [Unknown]
  - Headache [Unknown]
  - Blood pressure increased [Unknown]
  - Pain [Unknown]
  - Insomnia [Unknown]
  - Arthralgia [Unknown]
  - Bone pain [Unknown]

NARRATIVE: CASE EVENT DATE: 20221201
